FAERS Safety Report 5955725-3 (Version None)
Quarter: 2008Q4

REPORT INFORMATION
  Report Type: 
  Country: None (occurrence: None)
  Receive Date: 20081117
  Receipt Date: 20081111
  Transmission Date: 20090506
  Serious: Yes (Death, Hospitalization)
  Sender: FDA-Public Use
  Company Number: CN-ROXANE LABORATORIES, INC.-2008-RO-00211RO

PATIENT
  Age: 41 Year
  Sex: Male

DRUGS (6)
  1. CYCLOPHOSPHAMIDE [Suspect]
  2. PREDNISOLONE [Suspect]
  3. CYCLOSPORINE [Suspect]
  4. ERYTHROCYTES [Concomitant]
  5. PLASMA [Concomitant]
  6. PROTHROMBIN COMPLEX [Concomitant]

REACTIONS (4)
  - ARTERIAL INJURY [None]
  - ASPERGILLOSIS [None]
  - DEATH [None]
  - INFECTION [None]
